FAERS Safety Report 20381069 (Version 1)
Quarter: 2022Q1

REPORT INFORMATION
  Report Type: Spontaneous
  Country: None (occurrence: CN)
  Receive Date: 20220127
  Receipt Date: 20220127
  Transmission Date: 20220423
  Serious: Yes (Death, Hospitalization, Other)
  Sender: FDA-Public Use
  Company Number: CN-Hisun Pharmaceuticals-2124342

PATIENT
  Age: 30 Year
  Sex: Female

DRUGS (4)
  1. DAUNORUBICIN HYDROCHLORIDE [Suspect]
     Active Substance: DAUNORUBICIN HYDROCHLORIDE
     Indication: Natural killer-cell leukaemia
  2. VINCRISTINE [Suspect]
     Active Substance: VINCRISTINE
  3. ASPARAGINASE [Suspect]
     Active Substance: ASPARAGINASE
  4. PREDNISONE [Suspect]
     Active Substance: PREDNISONE

REACTIONS (4)
  - Haematochezia [Fatal]
  - Multiple organ dysfunction syndrome [Fatal]
  - Neutropenia [Fatal]
  - Myelosuppression [Fatal]
